FAERS Safety Report 9067869 (Version 1)
Quarter: 2013Q1

REPORT INFORMATION
  Report Type: Report from Study
  Country: CA (occurrence: CA)
  Receive Date: 20130128
  Receipt Date: 20130128
  Transmission Date: 20140127
  Serious: Yes (Death)
  Sender: FDA-Public Use
  Company Number: CA-ROCHE-1183991

PATIENT
  Sex: Female
  Weight: 68 kg

DRUGS (8)
  1. RITUXAN [Suspect]
     Indication: JUVENILE IDIOPATHIC ARTHRITIS
     Route: 042
     Dates: start: 20111012, end: 20111026
  2. PREDNISONE [Concomitant]
  3. OLMETEC [Concomitant]
     Indication: HYPERTENSION
  4. TYLENOL #2 (CANADA) [Concomitant]
     Route: 065
  5. METHOTREXATE [Concomitant]
     Route: 048
  6. NEXIUM [Concomitant]
  7. DIPHENHYDRAMINE HCL [Concomitant]
     Indication: PREMEDICATION
     Route: 048
     Dates: start: 20111012, end: 20111026
  8. ACETAMINOPHEN [Concomitant]
     Indication: PREMEDICATION
     Route: 048
     Dates: start: 20111012, end: 20111026

REACTIONS (1)
  - Death [Fatal]
